FAERS Safety Report 24084457 (Version 1)
Quarter: 2024Q3

REPORT INFORMATION
  Report Type: Spontaneous
  Country: FR (occurrence: FR)
  Receive Date: 20240712
  Receipt Date: 20240712
  Transmission Date: 20241016
  Serious: No
  Sender: PIERRE FABRE MEDICAMENT
  Company Number: None

PATIENT
  Age: 43 Year
  Sex: Female

DRUGS (7)
  1. PROPRANOLOL HYDROCHLORIDE [Suspect]
     Active Substance: PROPRANOLOL HYDROCHLORIDE
     Indication: Arrhythmia
     Dosage: 20 MG EVERY 12 HOURS
     Route: 048
     Dates: start: 20220128, end: 20220211
  2. PROPRANOLOL HYDROCHLORIDE [Suspect]
     Active Substance: PROPRANOLOL HYDROCHLORIDE
     Indication: Off label use
  3. HYDROXYZINE HYDROCHLORIDE [Suspect]
     Active Substance: HYDROXYZINE HYDROCHLORIDE
     Indication: Bipolar disorder
     Dosage: 20MG PER DAY
     Route: 048
     Dates: start: 2020
  4. BROMAZEPAM [Suspect]
     Active Substance: BROMAZEPAM
     Indication: Bipolar disorder
     Dosage: 9 MG PER DAY
     Route: 048
     Dates: start: 2016
  5. LAMOTRIGINE [Suspect]
     Active Substance: LAMOTRIGINE
     Indication: Bipolar disorder
     Dosage: 200 MG PER DAY
     Route: 048
     Dates: start: 2016
  6. SERTRALINE HYDROCHLORIDE [Suspect]
     Active Substance: SERTRALINE HYDROCHLORIDE
     Indication: Bipolar disorder
     Dosage: 25 MG PER DAY
     Route: 048
     Dates: start: 2021, end: 20220225
  7. IVABRADINE [Suspect]
     Active Substance: IVABRADINE
     Indication: Arrhythmia
     Dosage: 2.5 MG EVERY HOURS
     Route: 048
     Dates: start: 20220128, end: 20220211

REACTIONS (4)
  - Allodynia [Not Recovered/Not Resolved]
  - Product use in unapproved indication [Unknown]
  - Product use issue [Unknown]
  - Off label use [Unknown]

NARRATIVE: CASE EVENT DATE: 20220128
